FAERS Safety Report 17799301 (Version 1)
Quarter: 2020Q2

REPORT INFORMATION
  Report Type: Spontaneous
  Country: DE (occurrence: FR)
  Receive Date: 20200518
  Receipt Date: 20200518
  Transmission Date: 20200714
  Serious: Yes (Hospitalization)
  Sender: FDA-Public Use
  Company Number: FR-ELI_LILLY_AND_COMPANY-FR202005004024

PATIENT
  Age: 52 Year
  Sex: Male
  Weight: 76 kg

DRUGS (1)
  1. ERBITUX [Suspect]
     Active Substance: CETUXIMAB
     Indication: CHEMOTHERAPY
     Dosage: 400 MG/M2, UNK
     Route: 042
     Dates: start: 20191119

REACTIONS (4)
  - Hypoperfusion [Recovered/Resolved]
  - Tremor [Recovered/Resolved]
  - Livedo reticularis [Recovered/Resolved]
  - Respiratory distress [Recovered/Resolved]

NARRATIVE: CASE EVENT DATE: 20191119
